FAERS Safety Report 7755373-9 (Version None)
Quarter: 2011Q3

REPORT INFORMATION
  Report Type: 
  Country: None (occurrence: None)
  Receive Date: 20110916
  Receipt Date: 20110905
  Transmission Date: 20111222
  Serious: Yes (Other)
  Sender: FDA-Public Use
  Company Number: CA-JNJFOC-20110903218

PATIENT
  Sex: Female

DRUGS (3)
  1. INH [Concomitant]
     Route: 048
     Dates: start: 20110201
  2. SIMPONI [Suspect]
     Indication: RHEUMATOID ARTHRITIS
     Route: 058
     Dates: start: 20110816
  3. VITAMIN B6 [Concomitant]
     Route: 048
     Dates: start: 20110201

REACTIONS (4)
  - MALAISE [None]
  - CONFUSIONAL STATE [None]
  - NAUSEA [None]
  - HALLUCINATION [None]
